FAERS Safety Report 6577957-6 (Version None)
Quarter: 2010Q1

REPORT INFORMATION
  Report Type: 
  Country: None (occurrence: None)
  Receive Date: 20100211
  Receipt Date: 20100208
  Transmission Date: 20100710
  Serious: Yes (Life-Threatening)
  Sender: FDA-Public Use
  Company Number: DE-BRISTOL-MYERS SQUIBB COMPANY-14686760

PATIENT
  Age: 36 Year
  Sex: Male
  Weight: 72 kg

DRUGS (8)
  1. ENTECAVIR [Suspect]
     Indication: HEPATITIS B
     Dosage: INTERRUPTED ON 18DEC07.DURATION OF THERAPY:8 MONTHS
     Route: 048
  2. TACROLIMUS [Concomitant]
  3. PANTOPRAZOLE [Concomitant]
  4. PROPRANOLOL HYDROCHLORIDE [Concomitant]
  5. CEFOTAXIME [Concomitant]
  6. LACTULOSE [Concomitant]
  7. URSO FALK [Concomitant]
  8. VITAMIN K TAB [Concomitant]

REACTIONS (1)
  - LACTIC ACIDOSIS [None]
